FAERS Safety Report 10095537 (Version 1)
Quarter: 2014Q2

REPORT INFORMATION
  Report Type: Spontaneous
  Country: FR (occurrence: FR)
  Receive Date: 20140422
  Receipt Date: 20140422
  Transmission Date: 20141212
  Serious: Yes (Other)
  Sender: FDA-Public Use
  Company Number: FR-BAYER-2014-057685

PATIENT
  Age: 16 Year
  Sex: Male

DRUGS (6)
  1. SORAFENIB (RAF KINASE INHIBITOR) [Suspect]
     Indication: ACUTE MYELOID LEUKAEMIA
     Dosage: 400 MG, BID
     Route: 048
     Dates: start: 201207, end: 201208
  2. SORAFENIB (RAF KINASE INHIBITOR) [Suspect]
     Indication: ACUTE MYELOID LEUKAEMIA
     Dosage: 800 MG/D
     Dates: start: 201210
  3. ETOPOSIDE [Suspect]
     Indication: CYTOREDUCTIVE SURGERY
     Dosage: 150 MG/M2, D 1-2
     Dates: start: 201207
  4. ETOPOSIDE [Suspect]
     Indication: ACUTE MYELOID LEUKAEMIA
  5. RETINOIC ACID [Suspect]
     Indication: ACUTE MYELOID LEUKAEMIA
     Dosage: 45 MG/M2, QD; D 1-14
     Dates: start: 201207, end: 201208
  6. RETINOIC ACID [Suspect]
     Indication: ACUTE MYELOID LEUKAEMIA
     Dosage: UNK
     Dates: start: 201210, end: 201306

REACTIONS (6)
  - Graft versus host disease in skin [Recovering/Resolving]
  - Graft versus host disease in gastrointestinal tract [Recovering/Resolving]
  - Pancytopenia [None]
  - Hepatotoxicity [None]
  - Off label use [None]
  - Graft versus host disease in liver [Recovering/Resolving]
